FAERS Safety Report 24611863 (Version 1)
Quarter: 2024Q4

REPORT INFORMATION
  Report Type: Spontaneous
  Country: US (occurrence: US)
  Receive Date: 20241113
  Receipt Date: 20241113
  Transmission Date: 20250115
  Serious: No
  Sender: BRISTOL-MYERS SQUIBB COMPANY
  Company Number: US-BRISTOL-MYERS SQUIBB COMPANY-2024-177229

PATIENT

DRUGS (3)
  1. NIVOLUMAB [Suspect]
     Active Substance: NIVOLUMAB
     Indication: Product used for unknown indication
     Dosage: VIAL
  2. NIVOLUMAB [Suspect]
     Active Substance: NIVOLUMAB
     Dosage: VIAL
  3. NIVOLUMAB [Suspect]
     Active Substance: NIVOLUMAB
     Dosage: VIAL

REACTIONS (1)
  - Product storage error [Unknown]
